FAERS Safety Report 14723165 (Version 3)
Quarter: 2018Q3

REPORT INFORMATION
  Report Type: Spontaneous
  Country: CH (occurrence: CH)
  Receive Date: 20180405
  Receipt Date: 20180705
  Transmission Date: 20181010
  Serious: Yes (Hospitalization, Other)
  Sender: FDA-Public Use
  Company Number: CH-OTSUKA-2018_007616

PATIENT
  Age: 40 Year
  Sex: Male

DRUGS (4)
  1. ABILIFY [Suspect]
     Active Substance: ARIPIPRAZOLE
     Indication: AUTISM SPECTRUM DISORDER
     Dosage: 15 MG, QD (AT THE TIMEPOINT OF EVENT OCCURENCE)
     Route: 065
  2. ABILIFY [Suspect]
     Active Substance: ARIPIPRAZOLE
     Dosage: 5 MG, QD
     Route: 065
  3. ABILIFY [Suspect]
     Active Substance: ARIPIPRAZOLE
     Indication: PSYCHOTIC DISORDER
     Dosage: 5 MG, QD (DOSE AT THE TIMEPOINT OF EVENT UNKNOWN)
     Route: 048
  4. ABILIFY [Suspect]
     Active Substance: ARIPIPRAZOLE
     Indication: PSYCHOTIC DISORDER
     Dosage: 10 MG, DAILY (DOSE UNKNOWN AT THE TIMEPOINT OF EVENT)
     Route: 048

REACTIONS (5)
  - Product use in unapproved indication [Unknown]
  - Paranoia [Unknown]
  - Hospitalisation [Unknown]
  - Congestive cardiomyopathy [Unknown]
  - Underdose [Unknown]

NARRATIVE: CASE EVENT DATE: 2013
